FAERS Safety Report 8244703-X (Version None)
Quarter: 2012Q1

REPORT INFORMATION
  Report Type: 
  Country: None (occurrence: None)
  Receive Date: 20120329
  Receipt Date: 20110207
  Transmission Date: 20120608
  Serious: No
  Sender: FDA-Public Use
  Company Number: US-MYLANLABS-2011S1002694

PATIENT
  Sex: Female

DRUGS (1)
  1. FENTANYL-100 [Suspect]
     Indication: MULTIPLE SCLEROSIS
     Dosage: CHANGED Q48H
     Route: 062
     Dates: start: 20110101

REACTIONS (2)
  - APPLICATION SITE PAIN [None]
  - APPLICATION SITE ERYTHEMA [None]
